FAERS Safety Report 16867892 (Version 2)
Quarter: 2020Q1

REPORT INFORMATION
  Report Type: Spontaneous
  Country: US (occurrence: US)
  Receive Date: 20190930
  Receipt Date: 20200206
  Transmission Date: 20200409
  Serious: Yes (Other)
  Sender: FDA-Public Use
  Company Number: PHEH2019US039909

PATIENT
  Sex: Female

DRUGS (4)
  1. COSENTYX [Suspect]
     Active Substance: SECUKINUMAB
     Dosage: UNK
     Route: 065
     Dates: start: 20190324
  2. COSENTYX [Suspect]
     Active Substance: SECUKINUMAB
     Dosage: UNK
     Route: 065
     Dates: start: 20190505
  3. COSENTYX [Suspect]
     Active Substance: SECUKINUMAB
     Indication: BRONCHITIS
     Dosage: UNK (SINCE 2 YEARS)
     Route: 065
     Dates: start: 20190211
  4. COSENTYX [Suspect]
     Active Substance: SECUKINUMAB
     Dosage: UNK
     Route: 065
     Dates: start: 20190807

REACTIONS (3)
  - Product use in unapproved indication [Unknown]
  - Upper respiratory tract infection [Unknown]
  - Extranodal marginal zone B-cell lymphoma (MALT type) [Unknown]
